FAERS Safety Report 5682802-7 (Version None)
Quarter: 2008Q1

REPORT INFORMATION
  Report Type: 
  Country: None (occurrence: None)
  Receive Date: 20080325
  Receipt Date: 20080314
  Transmission Date: 20080703
  Serious: Yes (Other)
  Sender: FDA-Public Use
  Company Number: WAES 0801FRA00088

PATIENT
  Age: 53 Year
  Sex: Male

DRUGS (12)
  1. TAB RALTEGRAVIR POTASSIUM [Suspect]
     Indication: HIV INFECTION
     Dosage: 400 MG/BID
     Route: 048
     Dates: start: 20070626, end: 20070913
  2. TAB RALTEGRAVIR POTASSIUM [Suspect]
     Indication: HIV INFECTION
     Dosage: 400 MG/BID
     Route: 048
     Dates: start: 20071226, end: 20080114
  3. FOSAMPRENAVIR CALCIUM [Concomitant]
  4. HEPATITIS B VIRUS VACCINE (UNSPECIFIED) [Concomitant]
  5. LOPERAMIDE HCL [Concomitant]
  6. MARAVIROC [Concomitant]
  7. NEVIRAPINE [Concomitant]
  8. PRAVASTATIN SODIUM [Concomitant]
  9. TAB EMTRICITABINE (+) TENOFOVIR DISOPROXIL FUMA [Suspect]
     Indication: HIV INFECTION
     Dosage: 1 TAB/DAILY
     Dates: start: 20071016, end: 20080114
  10. TAB TIPRANAVIR [Suspect]
     Indication: HIV INFECTION
     Dosage: 500 MG/BID
     Route: 048
     Dates: start: 20071226, end: 20080114
  11. CAP RITONAVIR [Suspect]
     Indication: HIV INFECTION
     Dosage: 200 MG/BID
     Route: 048
     Dates: start: 20070605, end: 20080114
  12. DIDANOSINE [Suspect]
     Indication: HIV INFECTION
     Dosage: 250 MG/DAILY
     Route: 048
     Dates: start: 20071226, end: 20080114

REACTIONS (2)
  - CYTOLYTIC HEPATITIS [None]
  - DRUG RESISTANCE [None]
